FAERS Safety Report 10208775 (Version 3)
Quarter: 2014Q2

REPORT INFORMATION
  Report Type: Report from Study
  Country: FR (occurrence: FR)
  Receive Date: 20140530
  Receipt Date: 20140619
  Transmission Date: 20141212
  Serious: No
  Sender: FDA-Public Use
  Company Number: FR-JNJFOC-20140508220

PATIENT
  Age: 67 Year
  Sex: Male
  Weight: 82 kg

DRUGS (5)
  1. IBRUTINIB [Suspect]
     Indication: LYMPHOCYTIC LYMPHOMA
     Route: 048
     Dates: start: 20140225
  2. IBRUTINIB [Suspect]
     Indication: CHRONIC LYMPHOCYTIC LEUKAEMIA
     Route: 048
     Dates: start: 20140225
  3. METFORMIN [Concomitant]
     Indication: DIABETES MELLITUS
  4. VERAPAMIL [Concomitant]
     Indication: HYPERTENSION
  5. LOSARTAN+HYDROCHLOROTHIAZIDE [Concomitant]
     Indication: HYPERTENSION

REACTIONS (1)
  - Neutropenia [Not Recovered/Not Resolved]
